FAERS Safety Report 13564455 (Version 5)
Quarter: 2018Q1

REPORT INFORMATION
  Report Type: Report from Study
  Country: CO (occurrence: CO)
  Receive Date: 20170519
  Receipt Date: 20180207
  Transmission Date: 20180508
  Serious: Yes (Hospitalization)
  Sender: FDA-Public Use
  Company Number: CO-INCYTE CORPORATION-2017IN003978

PATIENT

DRUGS (13)
  1. NIFEDIPIN [Concomitant]
     Active Substance: NIFEDIPINE
     Dosage: 1 DF, QD (MORE THAN A YEAR AGO)
     Route: 048
  2. LINAGLIPTIN [Concomitant]
     Active Substance: LINAGLIPTIN
     Dosage: 1 DF, UNK (STARTED APPROXIMATELY1 YEAR AGO)
     Route: 048
  3. LINAGLIPTIN [Concomitant]
     Active Substance: LINAGLIPTIN
     Dosage: 1 DF, UNK (STARTED APPROXIMATELY1 YEAR AGO)
     Route: 048
  4. JAKAVI [Suspect]
     Active Substance: RUXOLITINIB
     Indication: MYELODYSPLASTIC SYNDROME
     Dosage: 15 MG, BID
     Route: 048
     Dates: start: 20151116
  5. JAKAVI [Suspect]
     Active Substance: RUXOLITINIB
     Indication: PRIMARY MYELOFIBROSIS
     Dosage: 5 MG, BID
     Route: 048
  6. LINAGLIPTIN [Concomitant]
     Active Substance: LINAGLIPTIN
     Dosage: 1 DF, UNK (STARTED APPROXIMATELY1 YEAR AGO)
     Route: 048
  7. FUROSEMIDE. [Concomitant]
     Active Substance: FUROSEMIDE
     Indication: HYPERTENSION
  8. FUROSEMIDE. [Concomitant]
     Active Substance: FUROSEMIDE
     Indication: FLUID RETENTION
  9. NIFEDIPIN [Concomitant]
     Active Substance: NIFEDIPINE
     Indication: HYPERTENSION
     Route: 065
  10. NIFEDIPIN [Concomitant]
     Active Substance: NIFEDIPINE
     Dosage: 1 DF, QD (MORE THAN A YEAR AGO)
     Route: 048
  11. FUROSEMIDE SODIUM [Concomitant]
     Active Substance: FUROSEMIDE SODIUM
     Indication: HYPERTENSION
     Dosage: 1 DF, QD (MORE THAN 7 YEARS AGO)
     Route: 048
  12. FUROSEMIDE SODIUM [Concomitant]
     Active Substance: FUROSEMIDE SODIUM
     Indication: FLUID RETENTION
     Dosage: UNK
  13. LINAGLIPTIN [Concomitant]
     Active Substance: LINAGLIPTIN
     Indication: DIABETES MELLITUS
     Dosage: 1 DF, UNK (STARTED APPROXIMATELY1 YEAR AGO)
     Route: 048

REACTIONS (9)
  - Abdominal pain lower [Unknown]
  - Urinary tract infection [Not Recovered/Not Resolved]
  - Vulvovaginal pain [Unknown]
  - Urine odour abnormal [Unknown]
  - Blood glucose increased [Unknown]
  - Blood glucose abnormal [Unknown]
  - Blood creatinine increased [Not Recovered/Not Resolved]
  - Renal pain [Unknown]
  - Product use in unapproved indication [Unknown]

NARRATIVE: CASE EVENT DATE: 20151116
